FAERS Safety Report 5595661-8 (Version None)
Quarter: 2007Q4

REPORT INFORMATION
  Report Type: 
  Country: None (occurrence: None)
  Receive Date: 20071218
  Receipt Date: 20070815
  Transmission Date: 20080405
  Serious: Yes (Hospitalization)
  Sender: FDA-Public Use
  Company Number: 2007067862

PATIENT
  Age: 67 Year
  Sex: Male
  Weight: 107.5 kg

DRUGS (1)
  1. BEXTRA [Suspect]
     Dosage: 40 MG (20 MG, 2 IN 1 D)
     Dates: end: 20050701

REACTIONS (1)
  - MYOCARDIAL INFARCTION [None]
